FAERS Safety Report 9238611 (Version 1)
Quarter: 2013Q1

REPORT INFORMATION
  Report Type: Spontaneous
  Country: US (occurrence: None)
  Receive Date: 20121101
  Receipt Date: 20121101
  Transmission Date: 20140127
  Serious: No
  Sender: FDA-Public Use
  Company Number: 2012MZ000354

PATIENT
  Age: 31 Year
  Sex: Female
  Weight: 68.04 kg

DRUGS (12)
  1. XEOMIN [Suspect]
     Indication: TORTICOLLIS
     Dates: start: 20120711, end: 20120711
  2. BACLOFEN [Concomitant]
  3. BUSPAR [Concomitant]
  4. CLONOPIN [Concomitant]
  5. TRAZODONE [Concomitant]
  6. MORPHINE [Concomitant]
  7. LYRICA [Concomitant]
  8. GABAPENTIN [Concomitant]
  9. AMITIZA [Concomitant]
  10. ALBUTEROL /00139502/ [Concomitant]
  11. ZYRTEC [Concomitant]
  12. ZOFRAN /00955302/ [Concomitant]

REACTIONS (6)
  - Panic attack [None]
  - Pain [None]
  - Malaise [None]
  - Therapeutic response decreased [None]
  - Headache [None]
  - Injection site pain [None]
